FAERS Safety Report 11027013 (Version 3)
Quarter: 2015Q2

REPORT INFORMATION
  Report Type: Spontaneous
  Country: US (occurrence: US)
  Receive Date: 20150414
  Receipt Date: 20150505
  Transmission Date: 20150821
  Serious: Yes (Hospitalization, Other)
  Sender: FDA-Public Use
  Company Number: US-UNITED THERAPEUTICS-UNT-2015-004155

PATIENT
  Sex: Female
  Weight: 82 kg

DRUGS (2)
  1. REMODULIN [Suspect]
     Active Substance: TREPROSTINIL
     Dosage: 0.0043 ?G/KG, CONTINUING
     Route: 041
     Dates: start: 20150409, end: 20150417
  2. REMODULIN [Suspect]
     Active Substance: TREPROSTINIL
     Indication: PULMONARY ARTERIAL HYPERTENSION
     Dosage: 0.0043 ?G/KG, Q48H
     Route: 041
     Dates: start: 20120712

REACTIONS (10)
  - Treatment noncompliance [Unknown]
  - Subdural haematoma [Unknown]
  - Upper limb fracture [Unknown]
  - Dyspnoea [Unknown]
  - Pain [Unknown]
  - Injection site pustule [Unknown]
  - Feeling cold [Unknown]
  - Device dislocation [Unknown]
  - Drug dose omission [Unknown]
  - Injection site pain [Unknown]

NARRATIVE: CASE EVENT DATE: 20150320
